FAERS Safety Report 4603207-3 (Version None)
Quarter: 2005Q1

REPORT INFORMATION
  Report Type: 
  Country: None (occurrence: None)
  Receive Date: 20050309
  Receipt Date: 20050301
  Transmission Date: 20050727
  Serious: Yes (Other)
  Sender: FDA-Public Use
  Company Number: US-ABBOTT-05P-163-0292524-00

PATIENT

DRUGS (2)
  1. NORVIR [Suspect]
     Indication: DRUG USE FOR UNKNOWN INDICATION
  2. THREE UNSPECIFIED CARDIAC MEDICATIONS [Concomitant]
     Indication: DRUG USE FOR UNKNOWN INDICATION

REACTIONS (1)
  - THROMBOTIC THROMBOCYTOPENIC PURPURA [None]
